FAERS Safety Report 16481291 (Version 1)
Quarter: 2019Q2

REPORT INFORMATION
  Report Type: Not Available
  Country: None (occurrence: CN)
  Receive Date: 20190626
  Receipt Date: 20190626
  Transmission Date: 20190711
  Serious: Yes (Life-Threatening)
  Sender: FDA-Public Use
  Company Number: CN-JIANGSU HENGRUI MEDICINE CO., LTD.-2069697

PATIENT
  Age: 30 Year
  Sex: Female
  Weight: 61 kg

DRUGS (3)
  1. PROPOFOL. [Concomitant]
     Active Substance: PROPOFOL
     Route: 041
     Dates: start: 20190603, end: 20190603
  2. FENTANYL CITRATE. [Concomitant]
     Active Substance: FENTANYL CITRATE
     Dates: start: 20190603, end: 20190603
  3. CISATRACURIUM BESYLATE INJECTION USP, 20 MG/10 ML (2 MG/ML) MULTI-DOSE [Suspect]
     Active Substance: CISATRACURIUM BESYLATE
     Indication: INDUCTION OF ANAESTHESIA
     Route: 042
     Dates: start: 20190603, end: 20190603

REACTIONS (1)
  - Anaphylactic shock [Recovering/Resolving]

NARRATIVE: CASE EVENT DATE: 20190603
